FAERS Safety Report 9758204 (Version 1)
Quarter: 2013Q4

REPORT INFORMATION
  Report Type: Spontaneous
  Country: US (occurrence: None)
  Receive Date: 20131213
  Receipt Date: 20131213
  Transmission Date: 20140711
  Serious: Yes (Life-Threatening, Hospitalization)
  Sender: FDA-Public Use
  Company Number: None

PATIENT
  Age: 61 Year
  Sex: Male
  Weight: 79.38 kg

DRUGS (1)
  1. AZITHROMYCIN [Suspect]
     Indication: UPPER RESPIRATORY TRACT INFECTION
     Dosage: 2 DAY 1: 1 DAILY  2 DAY 1: 1 DAILY  TAKEN BY MOUTH
     Route: 048
     Dates: start: 20120408, end: 20120410

REACTIONS (6)
  - Loss of consciousness [None]
  - Head injury [None]
  - Fall [None]
  - Dizziness [None]
  - Angina pectoris [None]
  - Cardiac pacemaker insertion [None]
